FAERS Safety Report 6957694-6 (Version None)
Quarter: 2010Q3

REPORT INFORMATION
  Report Type: 
  Country: None (occurrence: None)
  Receive Date: 20100826
  Receipt Date: 20100820
  Transmission Date: 20110219
  Serious: Yes (Death)
  Sender: FDA-Public Use
  Company Number: 2010080044

PATIENT
  Age: 46 Year
  Sex: Female

DRUGS (4)
  1. ONSOLIS [Suspect]
     Indication: CANCER PAIN
     Dosage: TITRATE AS PRESCRIBED, BU
     Route: 002
     Dates: start: 20100726, end: 20100801
  2. FENTANYL-100 [Concomitant]
  3. OXYCONTIN [Concomitant]
  4. HYDROMORPHON E(HYDRROMORPHONE) [Concomitant]

REACTIONS (2)
  - MALIGNANT NEOPLASM PROGRESSION [None]
  - PANCREATIC CARCINOMA METASTATIC [None]
